FAERS Safety Report 10673666 (Version 1)
Quarter: 2014Q4

REPORT INFORMATION
  Report Type: Report from Study
  Country: NL (occurrence: NL)
  Receive Date: 20141224
  Receipt Date: 20141224
  Transmission Date: 20150529
  Serious: Yes (Other)
  Sender: FDA-Public Use
  Company Number: PHHY2014NL166281

PATIENT
  Age: 82 Year
  Sex: Female

DRUGS (1)
  1. ZOMETA [Suspect]
     Active Substance: ZOLEDRONIC ACID
     Indication: PLASMA CELL MYELOMA
     Dosage: 4/100 MG/ML, ONCE EVERY EIGHT WEEKS
     Route: 042

REACTIONS (3)
  - Vomiting [Not Recovered/Not Resolved]
  - Pulmonary arterial hypertension [Not Recovered/Not Resolved]
  - Nausea [Not Recovered/Not Resolved]

NARRATIVE: CASE EVENT DATE: 201412
